FAERS Safety Report 7732349-9 (Version None)
Quarter: 2011Q3

REPORT INFORMATION
  Report Type: 
  Country: None (occurrence: None)
  Receive Date: 20110906
  Receipt Date: 20110830
  Transmission Date: 20111222
  Serious: Yes (Hospitalization)
  Sender: FDA-Public Use
  Company Number: JP-PFIZER INC-2011201028

PATIENT
  Age: 50 Year
  Sex: Female

DRUGS (1)
  1. ZITHROMAX [Suspect]
     Indication: PNEUMONIA MYCOPLASMAL
     Dosage: 1 DF, SINGLE
     Route: 048
     Dates: start: 20110127, end: 20110127

REACTIONS (2)
  - PYREXIA [None]
  - POLYMYOSITIS [None]
